FAERS Safety Report 11943402 (Version 1)
Quarter: 2016Q1

REPORT INFORMATION
  Report Type: Spontaneous
  Country: US (occurrence: US)
  Receive Date: 20160125
  Receipt Date: 20160125
  Transmission Date: 20160526
  Serious: No
  Sender: FDA-Public Use
  Company Number: US-UNITED THERAPEUTICS-UNT-2015-010182

PATIENT
  Age: 47 Year
  Sex: Female
  Weight: 71.2 kg

DRUGS (7)
  1. ADCIRCA [Suspect]
     Active Substance: TADALAFIL
     Indication: PRODUCT USED FOR UNKNOWN INDICATION
  2. OPSUMIT [Concomitant]
     Active Substance: MACITENTAN
     Indication: PRODUCT USED FOR UNKNOWN INDICATION
  3. ADEMPAS [Concomitant]
     Active Substance: RIOCIGUAT
     Indication: PRODUCT USED FOR UNKNOWN INDICATION
  4. ORENITRAM [Suspect]
     Active Substance: TREPROSTINIL
     Dosage: 3 MG, BID
     Route: 048
     Dates: start: 20140904
  5. ORENITRAM [Suspect]
     Active Substance: TREPROSTINIL
     Dosage: 3 MG, Q12H
     Route: 048
  6. ORENITRAM [Suspect]
     Active Substance: TREPROSTINIL
     Indication: PULMONARY ARTERIAL HYPERTENSION
     Dosage: 3 MG, TID
     Route: 048
     Dates: start: 20140904
  7. WARFARIN                           /00014802/ [Concomitant]
     Active Substance: WARFARIN
     Indication: PRODUCT USED FOR UNKNOWN INDICATION
     Dosage: UNKNOWN
     Route: 065

REACTIONS (13)
  - Feeling abnormal [Unknown]
  - Pollakiuria [Unknown]
  - Insomnia [Unknown]
  - Pain in extremity [Not Recovered/Not Resolved]
  - Respiration abnormal [Unknown]
  - Hypotension [Unknown]
  - Intervertebral disc protrusion [Unknown]
  - Chest discomfort [Unknown]
  - Back pain [Not Recovered/Not Resolved]
  - Bowel movement irregularity [Unknown]
  - Malaise [Unknown]
  - Fatigue [Unknown]
  - Flushing [Unknown]

NARRATIVE: CASE EVENT DATE: 201508
